FAERS Safety Report 6693428-0 (Version None)
Quarter: 2010Q2

REPORT INFORMATION
  Report Type: 
  Country: None (occurrence: None)
  Receive Date: 20100423
  Receipt Date: 20100416
  Transmission Date: 20101027
  Serious: Yes (Hospitalization)
  Sender: FDA-Public Use
  Company Number: US-BIOGENIDEC-2010BI008011

PATIENT
  Age: 56 Year
  Sex: Male

DRUGS (2)
  1. TYSABRI [Suspect]
     Indication: MULTIPLE SCLEROSIS
     Route: 042
     Dates: start: 20100108, end: 20100311
  2. BENADRYL [Concomitant]
     Route: 042

REACTIONS (16)
  - ARTHRITIS [None]
  - CHILLS [None]
  - COLD SWEAT [None]
  - DRUG INEFFECTIVE [None]
  - HEADACHE [None]
  - HYPERHIDROSIS [None]
  - INFUSION SITE PAIN [None]
  - JUDGEMENT IMPAIRED [None]
  - LETHARGY [None]
  - MALAISE [None]
  - NAUSEA [None]
  - PERIPHERAL COLDNESS [None]
  - PRURITUS [None]
  - SHOULDER OPERATION [None]
  - TINNITUS [None]
  - TREMOR [None]
